FAERS Safety Report 18404864 (Version 1)
Quarter: 2020Q4

REPORT INFORMATION
  Report Type: Spontaneous
  Country: US (occurrence: US)
  Receive Date: 20201020
  Receipt Date: 20201020
  Transmission Date: 20210114
  Serious: Yes (Hospitalization)
  Sender: FDA-Public Use
  Company Number: None

PATIENT
  Sex: Male

DRUGS (18)
  1. ONDANSETRON [Concomitant]
     Active Substance: ONDANSETRON
  2. MEGESROL SUS [Concomitant]
  3. SMZ/TMP DS [Concomitant]
     Active Substance: SULFAMETHOXAZOLE\TRIMETHOPRIM
  4. APAP/CODEINE [Concomitant]
     Active Substance: ACETAMINOPHEN\CODEINE PHOSPHATE
  5. ACETAZOLAMID [Concomitant]
     Active Substance: ACETAZOLAMIDE
  6. DOK [Concomitant]
     Active Substance: DOCUSATE SODIUM
  7. ESCITALOPRAM [Concomitant]
     Active Substance: ESCITALOPRAM OXALATE
  8. MEGESTROL SUS [Concomitant]
  9. PANTOPRAZOLE [Concomitant]
     Active Substance: PANTOPRAZOLE
  10. DEXAMETHASON [Concomitant]
     Active Substance: DEXAMETHASONE
  11. PROMETHAZINE [Concomitant]
     Active Substance: PROMETHAZINE HYDROCHLORIDE
  12. ZINC SULFATE. [Concomitant]
     Active Substance: ZINC SULFATE
  13. LORAZEPAM. [Concomitant]
     Active Substance: LORAZEPAM
  14. MECLIZINE [Concomitant]
     Active Substance: MECLIZINE HYDROCHLORIDE
  15. POT CHLROIDE ER [Concomitant]
  16. ALECENSA [Suspect]
     Active Substance: ALECTINIB HYDROCHLORIDE
     Indication: LUNG NEOPLASM MALIGNANT
     Route: 048
     Dates: start: 20171221
  17. HALOPERIDOL. [Concomitant]
     Active Substance: HALOPERIDOL
  18. SODIUM BICAR [Concomitant]

REACTIONS (1)
  - Hospitalisation [None]
